FAERS Safety Report 5127107-8 (Version None)
Quarter: 2006Q4

REPORT INFORMATION
  Report Type: 
  Country: None (occurrence: None)
  Receive Date: 20061013
  Receipt Date: 20061006
  Transmission Date: 20070319
  Serious: Yes (Other)
  Sender: FDA-Public Use
  Company Number: BE-SANOFI-SYNTHELABO-A01200608337

PATIENT
  Sex: Female

DRUGS (1)
  1. ELOXATIN [Suspect]
     Indication: COLORECTAL CANCER
     Dosage: UNK
     Route: 042

REACTIONS (4)
  - HAEMOLYSIS [None]
  - HEPATITIS [None]
  - INTRAVASCULAR HAEMOLYSIS [None]
  - THROMBOCYTOPENIA [None]
